FAERS Safety Report 7124841-5 (Version None)
Quarter: 2010Q4

REPORT INFORMATION
  Report Type: 
  Country: None (occurrence: None)
  Receive Date: 20101129
  Receipt Date: 20101123
  Transmission Date: 20110411
  Serious: Yes (Other)
  Sender: FDA-Public Use
  Company Number: IL-GENZYME-CAMP-1001065

PATIENT
  Sex: Female

DRUGS (4)
  1. ALEMTUZUMAB [Suspect]
     Indication: MULTIPLE SCLEROSIS
     Dosage: 12 MG, QD
     Route: 050
     Dates: start: 20090419, end: 20090423
  2. ALEMTUZUMAB [Suspect]
     Dosage: 12 MG, QD
     Route: 050
     Dates: start: 20100427, end: 20100428
  3. METHYLPREDNISOLONE [Concomitant]
     Indication: MULTIPLE SCLEROSIS
     Dosage: 1 G, QD
     Route: 050
     Dates: start: 20090419, end: 20090421
  4. METHYLPREDNISOLONE [Concomitant]
     Dosage: 1 G, QD
     Route: 050
     Dates: start: 20100427, end: 20100428

REACTIONS (1)
  - ABORTION SPONTANEOUS [None]
